FAERS Safety Report 25715106 (Version 1)
Quarter: 2025Q3

REPORT INFORMATION
  Report Type: Spontaneous
  Country: US (occurrence: None)
  Receive Date: 20250821
  Receipt Date: 20250821
  Transmission Date: 20251020
  Serious: Yes (Hospitalization)
  Sender: FDA-CTU
  Company Number: None

PATIENT
  Sex: Female

DRUGS (11)
  1. AVONEX [Suspect]
     Active Substance: INTERFERON BETA-1A
     Indication: Multiple sclerosis
     Dosage: FREQUENCY : WEEKLY;?
     Route: 030
     Dates: start: 20161216
  2. ACETAMIN TAB 325MG [Concomitant]
  3. ALPRAZOLAM TAB 0.25MG [Concomitant]
  4. AMITRIPTYLIN TAB 25MG [Concomitant]
  5. AMLODIPINE [Concomitant]
     Active Substance: AMLODIPINE BESYLATE
  6. ASPIRIN CHW 81MG [Concomitant]
  7. AVONEX PREFL KIT 30MCG [Concomitant]
  8. BENAZEPRIL TAB 10MG [Concomitant]
  9. CARVEDILOL TAB 3.125MG [Concomitant]
  10. COQ10 CAP 100MG [Concomitant]
  11. GABAPENTIN [Concomitant]
     Active Substance: GABAPENTIN

REACTIONS (3)
  - Fall [None]
  - Cerebrovascular accident [None]
  - Intentional dose omission [None]
